FAERS Safety Report 21929754 (Version 2)
Quarter: 2023Q1

REPORT INFORMATION
  Report Type: Other
  Country: GB (occurrence: GB)
  Receive Date: 20230131
  Receipt Date: 20230321
  Transmission Date: 20230418
  Serious: Yes (Hospitalization, Other)
  Sender: FDA-Public Use
  Company Number: None

PATIENT

DRUGS (16)
  1. METFORMIN HYDROCHLORIDE [Suspect]
     Active Substance: METFORMIN HYDROCHLORIDE
     Indication: Product used for unknown indication
     Dosage: 1 DOSAGE FORM (TO BE TAKEN WITH BREAKFAST, LUNCH AND EVENING MEAL 84 TABLET - HELD OA)
     Route: 065
     Dates: start: 20220404
  2. METFORMIN HYDROCHLORIDE [Suspect]
     Active Substance: METFORMIN HYDROCHLORIDE
     Dosage: 500 MILLIGRAM, TID,ONE TO BE TAKEN WITHBREAKFAST, LUNCH AND EVENING MEA
     Route: 065
  3. BECLOMETHASONE DIPROPIONATE [Concomitant]
     Active Substance: BECLOMETHASONE DIPROPIONATE
     Indication: Product used for unknown indication
     Dosage: 2 DOSAGE FORM, BID 100 MICROGRAM /DOSE INHALER (CHIESI LTD) TWO PUFFS TO BE INHALED TWICE A DAY 1 X
  4. ALBUTEROL [Concomitant]
     Active Substance: ALBUTEROL
     Indication: Product used for unknown indication
     Dosage: 2 DOSAGE FORM, PRN 100 MICROGRAM/DOSE INHALER CFC FREE (TEVA UK LTD) TWO PUFFS TO BE INHALED AS NEED
     Dates: start: 20220412
  5. ALVERINE [Concomitant]
     Active Substance: ALVERINE
     Indication: Product used for unknown indication
     Dosage: 60 MILLIGRAM,1-2 TDS
     Route: 065
     Dates: start: 20220412
  6. AMISULPRIDE [Concomitant]
     Active Substance: AMISULPRIDE
     Indication: Product used for unknown indication
     Dosage: 200 MILLIGRAM, BID 200MG TABLETS TWO AT NIGHT 56 TABLET
     Route: 065
     Dates: start: 20220412
  7. CITALOPRAM [Concomitant]
     Active Substance: CITALOPRAM HYDROBROMIDE
     Indication: Product used for unknown indication
     Dosage: 1 DOSAGE FORM, QD
     Route: 065
     Dates: start: 20220412
  8. CITALOPRAM [Concomitant]
     Active Substance: CITALOPRAM HYDROBROMIDE
     Dosage: 40 MILLIGRAM, QD
     Route: 065
  9. LANSOPRAZOLE [Concomitant]
     Active Substance: LANSOPRAZOLE
     Indication: Product used for unknown indication
     Dosage: 1 DOSAGE FORM, QD EACH MORNING 28 CAPSULE
     Route: 065
     Dates: start: 20220412
  10. LANSOPRAZOLE [Concomitant]
     Active Substance: LANSOPRAZOLE
     Dosage: 30 MILLIGRAM, QD,ONE TO BETAKEN EACH MORNING
     Route: 065
  11. LOSARTAN [Concomitant]
     Active Substance: LOSARTAN
     Indication: Product used for unknown indication
     Dosage: 1 DOSAGE FORM, QD 28 TABLET - HELD OA
     Route: 065
     Dates: start: 20220412
  12. LOSARTAN [Concomitant]
     Active Substance: LOSARTAN
     Dosage: 50 MILLIGRAM, QD,ONE TO BE TAKEN EACH DAY 28 TABLET - HELD OA
     Route: 065
  13. PREGABALIN [Concomitant]
     Active Substance: PREGABALIN
     Indication: Product used for unknown indication
     Dosage: 1 DOSAGE FORM, BID
     Route: 065
     Dates: start: 20220412
  14. PREGABALIN [Concomitant]
     Active Substance: PREGABALIN
     Dosage: 10 MILLIGRAM, BID
     Route: 065
  15. LITHIUM [Concomitant]
     Active Substance: LITHIUM
     Indication: Product used for unknown indication
     Dosage: 2 DOSAGE FORM AT NIGHT
     Route: 065
     Dates: start: 20220412
  16. LITHIUM [Concomitant]
     Active Substance: LITHIUM
     Dosage: 800 MILLIGRAM, QD, AT NIGHT
     Route: 065

REACTIONS (1)
  - Hepatitis [Unknown]
